FAERS Safety Report 8167927-9 (Version None)
Quarter: 2012Q1

REPORT INFORMATION
  Report Type: 
  Country: None (occurrence: None)
  Receive Date: 20120103
  Receipt Date: 20111107
  Transmission Date: 20120608
  Serious: No
  Sender: FDA-Public Use
  Company Number: AE-2011-003118

PATIENT
  Age: 58 Year
  Sex: Female
  Weight: 63.5036 kg

DRUGS (3)
  1. INCIVEK [Suspect]
     Dosage: (750 MG,Q 7-9 HOURS),ORAL
     Route: 048
     Dates: start: 20110808, end: 20111030
  2. PEGASYS [Concomitant]
  3. RIBAVIRIN [Concomitant]

REACTIONS (2)
  - RASH PRURITIC [None]
  - PRURITUS GENERALISED [None]
